FAERS Safety Report 17428048 (Version 2)
Quarter: 2020Q1

REPORT INFORMATION
  Report Type: Spontaneous
  Country: US (occurrence: US)
  Receive Date: 20200217
  Receipt Date: 20200226
  Transmission Date: 20200409
  Serious: No
  Sender: FDA-Public Use
  Company Number: US-ARRAY-2020-07333

PATIENT

DRUGS (2)
  1. BRAFTOVI [Suspect]
     Active Substance: ENCORAFENIB
     Indication: COLON CANCER
     Dosage: 300 MG, QD
     Route: 048
  2. MEKTOVI [Suspect]
     Active Substance: BINIMETINIB
     Indication: COLON CANCER
     Dosage: UNK
     Route: 065

REACTIONS (4)
  - Faeces discoloured [Unknown]
  - Nausea [Unknown]
  - Product use in unapproved indication [Unknown]
  - Rash [Unknown]

NARRATIVE: CASE EVENT DATE: 202002
